FAERS Safety Report 8984950 (Version 1)
Quarter: 2012Q4

REPORT INFORMATION
  Report Type: 
  Country: FR (occurrence: FR)
  Receive Date: 20121226
  Receipt Date: 20121226
  Transmission Date: 20130627
  Serious: Yes (Life-Threatening, Other)
  Sender: FDA-Public Use
  Company Number: PHHY2012FR118671

PATIENT
  Age: 45 Year
  Sex: Female

DRUGS (6)
  1. COTAREG [Suspect]
     Dosage: 1 DF (80 mg vals /12.5 mg HCTZ), UNK
     Route: 048
     Dates: end: 20121012
  2. HALDOL [Interacting]
     Dosage: 5 mg, UNK
     Route: 048
     Dates: start: 20121012, end: 20121012
  3. DIPIPERON [Interacting]
     Dosage: 40 mg, UNK
     Route: 048
     Dates: end: 20121012
  4. CERAZET [Concomitant]
  5. PROZAC [Concomitant]
  6. XANAX [Concomitant]

REACTIONS (10)
  - Torsade de pointes [Recovered/Resolved]
  - Cardiac arrest [Recovered/Resolved]
  - Electrocardiogram QT prolonged [Recovered/Resolved]
  - Coma [Recovered/Resolved]
  - Hypokalaemia [Recovered/Resolved]
  - Bradycardia [Recovered/Resolved]
  - Decerebration [Unknown]
  - Hypokinesia [Unknown]
  - Troponin increased [Unknown]
  - Drug interaction [Unknown]
